FAERS Safety Report 14630712 (Version 1)
Quarter: 2018Q1

REPORT INFORMATION
  Report Type: Spontaneous
  Country: US (occurrence: US)
  Receive Date: 20180313
  Receipt Date: 20180313
  Transmission Date: 20180509
  Serious: Yes (Hospitalization, Other)
  Sender: FDA-Public Use
  Company Number: US-AUROBINDO-AUR-APL-2018-013655

PATIENT
  Age: 67 Year
  Sex: Male

DRUGS (1)
  1. METFORMIN [Suspect]
     Active Substance: METFORMIN HYDROCHLORIDE
     Indication: TYPE 2 DIABETES MELLITUS
     Dosage: UNK
     Route: 065

REACTIONS (12)
  - Hepatosplenomegaly [Recovered/Resolved]
  - Weight increased [Unknown]
  - Dyspnoea exertional [Unknown]
  - Mantle cell lymphoma [Recovering/Resolving]
  - Hyperuricaemia [Recovering/Resolving]
  - Liver function test abnormal [Unknown]
  - Lactic acidosis [Recovering/Resolving]
  - Anion gap increased [Unknown]
  - Generalised oedema [Unknown]
  - Renal failure [Recovered/Resolved]
  - Rash [Unknown]
  - Hyperkalaemia [Unknown]
